FAERS Safety Report 8161254 (Version 3)
Quarter: 2013Q1

REPORT INFORMATION
  Report Type: Spontaneous
  Country: US (occurrence: US)
  Receive Date: 20110929
  Receipt Date: 20130212
  Transmission Date: 20140127
  Serious: Yes (Life-Threatening, Hospitalization, Other)
  Sender: FDA-Public Use
  Company Number: US-BAYER-2011-091906

PATIENT
  Age: 17 Year
  Sex: Female
  Weight: 56.4 kg

DRUGS (6)
  1. YAZ [Suspect]
     Dosage: UNK
     Dates: start: 200901, end: 200910
  2. TETRACYCLINE [Concomitant]
     Indication: SKIN DISORDER
     Dosage: UNK UNK, QD
  3. WELLBUTRIN [Concomitant]
     Dosage: 150 MG, QD
  4. NORCO [Concomitant]
     Indication: BACK PAIN
     Dosage: UNK
     Route: 048
     Dates: start: 200909
  5. ANTIBIOTICS [Concomitant]
  6. TRINESSA [Concomitant]
     Dosage: UNK
     Dates: start: 20090927

REACTIONS (8)
  - Deep vein thrombosis [None]
  - Deep vein thrombosis [None]
  - Thrombosis [None]
  - Injury [None]
  - Pain [None]
  - General physical health deterioration [None]
  - Emotional distress [None]
  - Anhedonia [None]
